FAERS Safety Report 9725236 (Version 2)
Quarter: 2013Q4

REPORT INFORMATION
  Report Type: Spontaneous
  Country: US (occurrence: None)
  Receive Date: 20131129
  Receipt Date: 20131209
  Transmission Date: 20140711
  Serious: Yes (Hospitalization)
  Sender: FDA-Public Use
  Company Number: SYM-2013-13143

PATIENT
  Age: 82 Year
  Sex: Female

DRUGS (5)
  1. FLECAINIDE [Suspect]
     Indication: PRODUCT USED FOR UNKNOWN INDICATION
     Dosage: 400 MG
     Route: 048
  2. VERAPAMIL (VERAPAMIL) (VERAPAMIL) [Concomitant]
  3. WARFARIN (WARFARIN) (WARFARIN) [Concomitant]
  4. ALBUTEROL INHALER (SALBUTAMOL) (INHALANT) (SALBUTAMOL) [Concomitant]
  5. BUDESONIDE AND FORMOTEROL COMBINATION INHALER (FORMOTEROAL W/BUDESONIDE) (BUDESONIDE, FORMOTEROL) [Concomitant]

REACTIONS (8)
  - Dizziness [None]
  - Palpitations [None]
  - Bradycardia [None]
  - Hypotension [None]
  - Atrioventricular block [None]
  - Toxicity to various agents [None]
  - Overdose [None]
  - Syncope [None]
